FAERS Safety Report 24922125 (Version 4)
Quarter: 2025Q4

REPORT INFORMATION
  Report Type: Report from Study
  Country: JP (occurrence: JP)
  Receive Date: 20250204
  Receipt Date: 20251021
  Transmission Date: 20260117
  Serious: No
  Sender: UCB
  Company Number: JP-UCBJ-CD202501345UCBPHAPROD

PATIENT
  Age: 14 Year
  Sex: Female
  Weight: 36 kg

DRUGS (12)
  1. FENFLURAMINE HYDROCHLORIDE [Suspect]
     Active Substance: FENFLURAMINE HYDROCHLORIDE
     Indication: Lennox-Gastaut syndrome
     Dosage: 0.03 MILLIGRAM/KILOGRAM, 2X/DAY (BID)
     Dates: start: 20240918, end: 20241008
  2. FENFLURAMINE HYDROCHLORIDE [Suspect]
     Active Substance: FENFLURAMINE HYDROCHLORIDE
     Dosage: 0.06 MILLIGRAM/KILOGRAM, 2X/DAY (BID)
     Dates: start: 20241009, end: 20241105
  3. FENFLURAMINE HYDROCHLORIDE [Suspect]
     Active Substance: FENFLURAMINE HYDROCHLORIDE
     Dosage: 0.09 MILLIGRAM/KILOGRAM, 2X/DAY (BID)
     Dates: start: 20241106, end: 20250311
  4. FENFLURAMINE HYDROCHLORIDE [Suspect]
     Active Substance: FENFLURAMINE HYDROCHLORIDE
     Dosage: 0.12 MILLIGRAM/KILOGRAM, 2X/DAY (BID)
     Dates: start: 20250312, end: 20250408
  5. FENFLURAMINE HYDROCHLORIDE [Suspect]
     Active Substance: FENFLURAMINE HYDROCHLORIDE
     Dosage: 0.15 MILLIGRAM/KILOGRAM, 2X/DAY (BID)
     Dates: start: 20250409, end: 20250506
  6. FENFLURAMINE HYDROCHLORIDE [Suspect]
     Active Substance: FENFLURAMINE HYDROCHLORIDE
     Dosage: 0.175 MILLIGRAM/KILOGRAM, 2X/DAY (BID)
     Dates: start: 20250507, end: 20250610
  7. FENFLURAMINE HYDROCHLORIDE [Suspect]
     Active Substance: FENFLURAMINE HYDROCHLORIDE
     Dosage: 0.2 MILLIGRAM/KILOGRAM, 2X/DAY (BID)
     Dates: start: 20250611
  8. E Keppra tablet [Concomitant]
     Indication: Lennox-Gastaut syndrome
     Dosage: UNK
  9. VIMPAT [Concomitant]
     Active Substance: LACOSAMIDE
     Indication: Lennox-Gastaut syndrome
     Dosage: UNK
  10. DEPAKENE [Concomitant]
     Active Substance: VALPROIC ACID
     Indication: Lennox-Gastaut syndrome
     Dosage: UNK
  11. SINGULAIR OD [Concomitant]
     Indication: Rhinitis allergic
     Dosage: UNK
  12. SINGULAIR OD [Concomitant]
     Indication: Asthma

REACTIONS (3)
  - Somnolence [Recovering/Resolving]
  - Prescribed underdose [Unknown]
  - Off label use [Unknown]

NARRATIVE: CASE EVENT DATE: 20240918
